FAERS Safety Report 11616373 (Version 1)
Quarter: 2015Q4

REPORT INFORMATION
  Report Type: Spontaneous
  Country: JP (occurrence: JP)
  Receive Date: 20151009
  Receipt Date: 20151009
  Transmission Date: 20160304
  Serious: Yes (Other)
  Sender: FDA-Public Use
  Company Number: CHPA2015JP011592

PATIENT
  Age: 82 Year
  Sex: Female

DRUGS (2)
  1. LANSOPRAZOLE. [Suspect]
     Active Substance: LANSOPRAZOLE
     Indication: PROPHYLAXIS
     Dosage: 1 DF, QD
     Route: 048
  2. WARFARIN [Suspect]
     Active Substance: WARFARIN
     Indication: CARDIAC OPERATION
     Dosage: 3 MG, UNK
     Route: 065

REACTIONS (4)
  - Post procedural haemorrhage [Unknown]
  - International normalised ratio increased [Unknown]
  - Drug interaction [Unknown]
  - Product use issue [Unknown]
